FAERS Safety Report 10152659 (Version 1)
Quarter: 2014Q2

REPORT INFORMATION
  Report Type: Report from Study
  Country: DE (occurrence: DE)
  Receive Date: 20140505
  Receipt Date: 20140505
  Transmission Date: 20141212
  Serious: Yes (Life-Threatening, Hospitalization)
  Sender: FDA-Public Use
  Company Number: PHHO2014DE006491

PATIENT
  Sex: 0

DRUGS (3)
  1. IMATINIB [Suspect]
     Indication: ACUTE LYMPHOCYTIC LEUKAEMIA
     Dosage: 400 MG, UNK
     Route: 048
     Dates: start: 20130613, end: 20140104
  2. OMEPRAZOLE [Concomitant]
  3. RANITIDINE [Concomitant]

REACTIONS (2)
  - Gastric ulcer [Recovering/Resolving]
  - Gastric ulcer haemorrhage [Recovering/Resolving]
